FAERS Safety Report 7075563-0 (Version None)
Quarter: 2010Q4

REPORT INFORMATION
  Report Type: 
  Country: None (occurrence: None)
  Receive Date: 20101030
  Receipt Date: 20101005
  Transmission Date: 20110411
  Serious: No
  Sender: FDA-Public Use
  Company Number: US-WYE-H17978410

PATIENT
  Age: 74 Year
  Sex: Female
  Weight: 70.37 kg

DRUGS (2)
  1. ADVIL PM [Suspect]
     Indication: PAIN
     Dosage: 1 CAPLET AS NEEDED
     Route: 048
     Dates: start: 20100101
  2. ADVIL PM [Suspect]
     Indication: INSOMNIA

REACTIONS (2)
  - SOMNOLENCE [None]
  - THIRST [None]
